FAERS Safety Report 13698047 (Version 1)
Quarter: 2017Q2

REPORT INFORMATION
  Report Type: Spontaneous
  Country: US (occurrence: US)
  Receive Date: 20170628
  Receipt Date: 20170628
  Transmission Date: 20170830
  Serious: No
  Sender: FDA-Public Use
  Company Number: US-MYLANLABS-2017M1016816

PATIENT
  Age: 55 Year
  Sex: Female
  Weight: 88.44 kg

DRUGS (1)
  1. VALACYCLOVIR [Suspect]
     Active Substance: VALACYCLOVIR HYDROCHLORIDE
     Indication: HERPES VIRUS INFECTION
     Dosage: 1 G, TID
     Route: 048
     Dates: start: 20170313, end: 20170317

REACTIONS (3)
  - Drug ineffective [Recovered/Resolved]
  - Loss of personal independence in daily activities [Recovered/Resolved]
  - Hypersomnia [Recovered/Resolved]

NARRATIVE: CASE EVENT DATE: 20170313
